FAERS Safety Report 16238097 (Version 1)
Quarter: 2019Q2

REPORT INFORMATION
  Report Type: Spontaneous
  Country: US (occurrence: US)
  Receive Date: 20190425
  Receipt Date: 20190425
  Transmission Date: 20190711
  Serious: No
  Sender: FDA-Public Use
  Company Number: US-009507513-1904USA008474

PATIENT
  Age: 82 Year
  Sex: Male

DRUGS (1)
  1. ZOLINZA [Suspect]
     Active Substance: VORINOSTAT
     Indication: CUTANEOUS T-CELL LYMPHOMA STAGE II
     Dosage: UNK
     Route: 048

REACTIONS (1)
  - Off label use [Unknown]
